FAERS Safety Report 10197243 (Version 2)
Quarter: 2014Q2

REPORT INFORMATION
  Report Type: Spontaneous
  Country: US (occurrence: US)
  Receive Date: 20140527
  Receipt Date: 20140617
  Transmission Date: 20141212
  Serious: Yes (Death)
  Sender: FDA-Public Use
  Company Number: US-GLAXOSMITHKLINE-A1074592A

PATIENT
  Age: 53 Year
  Sex: Female

DRUGS (14)
  1. VOTRIENT [Suspect]
     Indication: METASTATIC RENAL CELL CARCINOMA
     Dosage: 800MG PER DAY
     Route: 048
     Dates: start: 20130828, end: 20140220
  2. VITAMIN C [Concomitant]
  3. VITAMIN D [Concomitant]
  4. CALCIUM [Concomitant]
  5. LOSARTAN [Concomitant]
  6. HCTZ [Concomitant]
  7. LORAZEPAM [Concomitant]
  8. POTASSIUM [Concomitant]
  9. TRAMADOL [Concomitant]
  10. CETIRIZINE [Concomitant]
  11. METOPROLOL [Concomitant]
  12. WELLBUTRIN [Concomitant]
  13. ESTRADIOL [Concomitant]
  14. MELOXICAM [Concomitant]

REACTIONS (2)
  - Malignant neoplasm progression [Fatal]
  - Drug ineffective [Unknown]
